FAERS Safety Report 4315791-8 (Version None)
Quarter: 2004Q1

REPORT INFORMATION
  Report Type: 
  Country: None (occurrence: None)
  Receive Date: 20040310
  Receipt Date: 20040304
  Transmission Date: 20041129
  Serious: Yes (Other)
  Sender: FDA-Public Use
  Company Number: 22906

PATIENT
  Age: 41 Year
  Sex: Male

DRUGS (1)
  1. ALDARA [Suspect]
     Indication: ACTINIC KERATOSIS
     Dosage: (0.5 SACHET, 3 IN 1 WEEK(S)), TOPICAL
     Route: 061
     Dates: start: 20031219, end: 20040108

REACTIONS (4)
  - APPLICATION SITE DISCHARGE [None]
  - APPLICATION SITE ERYTHEMA [None]
  - APPLICATION SITE OEDEMA [None]
  - LYMPHADENOPATHY [None]
